FAERS Safety Report 14571362 (Version 1)
Quarter: 2018Q1

REPORT INFORMATION
  Report Type: Spontaneous
  Country: US (occurrence: US)
  Receive Date: 20180223
  Receipt Date: 20180223
  Transmission Date: 20180509
  Serious: Yes (Other)
  Sender: FDA-Public Use
  Company Number: None

PATIENT
  Age: 67 Year
  Sex: Female
  Weight: 66.9 kg

DRUGS (2)
  1. ALIROCUMAB [Suspect]
     Active Substance: ALIROCUMAB
     Indication: HYPERLIPIDAEMIA
     Dosage: FREQUENCY - OTHER
     Route: 058
     Dates: start: 20171206, end: 20171226
  2. ALIROCUMAB [Suspect]
     Active Substance: ALIROCUMAB
     Indication: HYPERLIPIDAEMIA
     Route: 058
     Dates: start: 20171206, end: 20171226

REACTIONS (5)
  - Muscle spasms [None]
  - Alcohol use [None]
  - Dizziness [None]
  - Myalgia [None]
  - Hypotension [None]

NARRATIVE: CASE EVENT DATE: 20180102
